FAERS Safety Report 5067504-2 (Version None)
Quarter: 2006Q3

REPORT INFORMATION
  Report Type: 
  Country: None (occurrence: None)
  Receive Date: 20060728
  Receipt Date: 20060712
  Transmission Date: 20061208
  Serious: Yes (Hospitalization)
  Sender: FDA-Public Use
  Company Number: US200607002920

PATIENT
  Sex: Male

DRUGS (1)
  1. HUMATROPE [Suspect]

REACTIONS (3)
  - ACCIDENT [None]
  - FEMUR FRACTURE [None]
  - PHARMACEUTICAL PRODUCT COMPLAINT [None]
